FAERS Safety Report 11839898 (Version 1)
Quarter: 2015Q4

REPORT INFORMATION
  Report Type: Spontaneous
  Country: US (occurrence: US)
  Receive Date: 20151216
  Receipt Date: 20151216
  Transmission Date: 20160305
  Serious: No
  Sender: FDA-Public Use
  Company Number: US-BAYER-2015-490149

PATIENT
  Age: 74 Year
  Sex: Female
  Weight: 58.96 kg

DRUGS (2)
  1. CALCIUM [Concomitant]
     Active Substance: CALCIUM
  2. MIRALAX [Suspect]
     Active Substance: POLYETHYLENE GLYCOL 3350
     Indication: CONSTIPATION
     Dosage: HALF A DOSE, DAILY
     Route: 048
     Dates: start: 201503

REACTIONS (1)
  - Product use issue [None]

NARRATIVE: CASE EVENT DATE: 201503
